FAERS Safety Report 23201591 (Version 1)
Quarter: 2023Q4

REPORT INFORMATION
  Report Type: Spontaneous
  Country: US (occurrence: US)
  Receive Date: 20231118
  Receipt Date: 20231118
  Transmission Date: 20240110
  Serious: No
  Sender: FDA-Public Use
  Company Number: US-AMGEN-USASP2023205694

PATIENT
  Age: 60 Year
  Sex: Female

DRUGS (2)
  1. MVASI [Suspect]
     Active Substance: BEVACIZUMAB-AWWB
     Indication: Non-small cell lung cancer
     Dosage: 400 MILLIGRAM, 3 VIAL (1200 MILIGRAM)
     Route: 065
  2. MVASI [Suspect]
     Active Substance: BEVACIZUMAB-AWWB
     Dosage: 100 MILLIGRAM, 1 VIAL
     Route: 065

REACTIONS (1)
  - Neutrophil count decreased [Unknown]
